FAERS Safety Report 7310718-9 (Version None)
Quarter: 2011Q1

REPORT INFORMATION
  Report Type: 
  Country: None (occurrence: None)
  Receive Date: 20110224
  Receipt Date: 20110209
  Transmission Date: 20110831
  Serious: Yes (Other)
  Sender: FDA-Public Use
  Company Number: SK-SANOFI-AVENTIS-2011SA008430

PATIENT
  Age: 66 Year
  Sex: Female

DRUGS (13)
  1. GLIBENCLAMIDE [Concomitant]
  2. CADUET COMBINATION [Concomitant]
  3. PREDUCTAL [Concomitant]
  4. MULTAQ [Suspect]
     Route: 048
     Dates: start: 20110118
  5. CLOPIDOGREL [Concomitant]
  6. PRESTARIUM [Concomitant]
  7. CORONARY VASODILATORS [Concomitant]
     Dates: end: 20110118
  8. TENAXUM [Concomitant]
  9. GLUCOPHAGE [Concomitant]
  10. AMILORIDE HCL AND HYDROCHLOROTHIAZIDE [Concomitant]
  11. FENOFIBRATE [Concomitant]
  12. EBRANTIL [Concomitant]
  13. ANOPYRIN [Concomitant]

REACTIONS (5)
  - RASH [None]
  - LOCALISED OEDEMA [None]
  - REACTION TO DRUG EXCIPIENTS [None]
  - TONGUE OEDEMA [None]
  - ANGIOEDEMA [None]
